FAERS Safety Report 15984645 (Version 2)
Quarter: 2019Q1

REPORT INFORMATION
  Report Type: Spontaneous
  Country: JP (occurrence: JP)
  Receive Date: 20190220
  Receipt Date: 20190226
  Transmission Date: 20190418
  Serious: Yes (Other)
  Sender: FDA-Public Use
  Company Number: JP-BAYER-2019-030189

PATIENT
  Age: 78 Year
  Sex: Male

DRUGS (10)
  1. STIVARGA [Suspect]
     Active Substance: REGORAFENIB
     Indication: GASTROINTESTINAL STROMAL TUMOUR
     Dosage: 80MG DAILY, 3 WEKS ON 1 WEEK OFF
     Route: 048
     Dates: start: 20190123, end: 20190203
  2. THYRADIN S [Concomitant]
     Active Substance: LEVOTHYROXINE SODIUM
     Dosage: UNK
     Dates: start: 20171213
  3. PANCREATIN [Concomitant]
     Active Substance: PANCRELIPASE
     Dosage: UNK
     Dates: start: 20180511
  4. STIVARGA [Suspect]
     Active Substance: REGORAFENIB
     Indication: GASTROINTESTINAL STROMAL TUMOUR
     Dosage: DAILY DOSE 120MG
     Route: 048
     Dates: end: 20181031
  5. METHYCOBAL [Concomitant]
     Active Substance: METHYLCOBALAMIN
     Dosage: UNK
     Dates: start: 20150812
  6. MAGNESIUM OXIDE. [Suspect]
     Active Substance: MAGNESIUM OXIDE
     Indication: CONSTIPATION
     Dosage: 0.5 G, TID
     Route: 048
     Dates: start: 20111207, end: 20190108
  7. STIVARGA [Suspect]
     Active Substance: REGORAFENIB
     Indication: GASTROINTESTINAL STROMAL TUMOUR
     Dosage: 80MG DAILY, 3 WEEKS ON 1 WEEK OFF
     Route: 048
     Dates: start: 20190205
  8. REBAMIPIDE [Concomitant]
     Active Substance: REBAMIPIDE
     Dosage: UNK
     Dates: start: 20111207
  9. MIYA-BM [Concomitant]
     Active Substance: CLOSTRIDIUM BUTYRICUM SPORES STRAIN M-55
     Dosage: UNK
     Dates: start: 20110511
  10. STIVARGA [Suspect]
     Active Substance: REGORAFENIB
     Indication: GASTROINTESTINAL STROMAL TUMOUR
     Dosage: 80MG, QD, 3 WEEKS ADMINISTRATION AND 1 WEEK OFF
     Route: 048
     Dates: start: 20181114, end: 20190109

REACTIONS (7)
  - Decreased appetite [None]
  - Constipation [Recovered/Resolved]
  - Stoma site pain [None]
  - Palmar-plantar erythrodysaesthesia syndrome [None]
  - Renal impairment [Recovering/Resolving]
  - Gastrointestinal stoma complication [None]
  - Diarrhoea [None]

NARRATIVE: CASE EVENT DATE: 20181031
